FAERS Safety Report 16312426 (Version 2)
Quarter: 2020Q3

REPORT INFORMATION
  Report Type: Spontaneous
  Country: US (occurrence: US)
  Receive Date: 20190515
  Receipt Date: 20200907
  Transmission Date: 20201102
  Serious: Yes (Other)
  Sender: FDA-Public Use
  Company Number: US-ASTRAZENECA-2019SE69095

PATIENT
  Age: 21551 Day
  Sex: Male

DRUGS (46)
  1. LORATADINE. [Concomitant]
     Active Substance: LORATADINE
     Dates: start: 20111129
  2. TOLBUTAMIDE. [Concomitant]
     Active Substance: TOLBUTAMIDE
  3. PRILOSEC [Suspect]
     Active Substance: OMEPRAZOLE MAGNESIUM
     Indication: GASTROOESOPHAGEAL REFLUX DISEASE
     Dosage: GENERIC
     Route: 065
     Dates: start: 20160627, end: 20160727
  4. TIMOLOL. [Concomitant]
     Active Substance: TIMOLOL
     Dates: start: 20100503
  5. LORATADINE. [Concomitant]
     Active Substance: LORATADINE
     Dates: start: 20110308
  6. AMOX/ K CLAV [Concomitant]
     Dates: start: 20111129
  7. ACETAMI/CODEIN [Concomitant]
     Dosage: 300?30 MG TAB
     Route: 048
     Dates: start: 20121126
  8. LIPITOR [Concomitant]
     Active Substance: ATORVASTATIN CALCIUM
     Dates: start: 20111230
  9. VIAGRA [Concomitant]
     Active Substance: SILDENAFIL CITRATE
     Dates: start: 20120206
  10. FLUTICASONE. [Concomitant]
     Active Substance: FLUTICASONE
     Dosage: 5 MCG
     Dates: start: 20120713
  11. FERROUS SULF [Concomitant]
     Active Substance: FERROUS SULFATE
     Dates: start: 20160427
  12. LEVOFLOZACIN [Concomitant]
     Dates: start: 20150403
  13. LASIX [Concomitant]
     Active Substance: FUROSEMIDE
  14. PRILOSEC [Suspect]
     Active Substance: OMEPRAZOLE MAGNESIUM
     Indication: GASTROOESOPHAGEAL REFLUX DISEASE
     Dosage: GENERIC
     Route: 065
     Dates: start: 20160829, end: 20161029
  15. PREVACID [Suspect]
     Active Substance: LANSOPRAZOLE
     Route: 065
     Dates: start: 2000, end: 2016
  16. HYDROCHLOROT [Concomitant]
     Active Substance: HYDROCHLOROTHIAZIDE
     Dates: start: 20100225
  17. CLOTRIM/BETA DIPROP [Concomitant]
     Dates: start: 20101209
  18. LOVAZA [Concomitant]
     Active Substance: OMEGA-3-ACID ETHYL ESTERS
     Dates: start: 20110110
  19. CLONIDINE. [Concomitant]
     Active Substance: CLONIDINE
     Dates: start: 20110405
  20. IPRATROPIUM [Concomitant]
     Active Substance: IPRATROPIUM
     Dates: start: 20121003
  21. PREVACID 24 HR [Suspect]
     Active Substance: LANSOPRAZOLE
     Route: 065
  22. HYDROCHLOROT [Concomitant]
     Active Substance: HYDROCHLOROTHIAZIDE
     Dates: start: 20100316
  23. AMLODIPINE BESYLATE. [Concomitant]
     Active Substance: AMLODIPINE BESYLATE
     Dates: start: 20100316
  24. LISINOPRIL. [Concomitant]
     Active Substance: LISINOPRIL
     Dates: start: 20111031
  25. KLOR?CON [Concomitant]
     Active Substance: POTASSIUM CHLORIDE
     Dates: start: 20130815
  26. RENVELA [Concomitant]
     Active Substance: SEVELAMER CARBONATE
     Dates: start: 20160427
  27. PRILOSEC [Suspect]
     Active Substance: OMEPRAZOLE MAGNESIUM
     Indication: GASTROOESOPHAGEAL REFLUX DISEASE
     Route: 048
     Dates: start: 2000, end: 2016
  28. AMOXICILLIN. [Concomitant]
     Active Substance: AMOXICILLIN
     Dates: start: 20110308
  29. ATENOLOL. [Concomitant]
     Active Substance: ATENOLOL
     Dates: start: 20110308
  30. CARVEDILOL. [Concomitant]
     Active Substance: CARVEDILOL
     Dates: start: 20110706
  31. LISINOPRIL. [Concomitant]
     Active Substance: LISINOPRIL
     Dates: start: 20110901
  32. NAPROXEN. [Concomitant]
     Active Substance: NAPROXEN
     Dates: start: 20111213
  33. DOXYCYCLINE HYC [Concomitant]
     Active Substance: DOXYCYCLINE HYCLATE
     Dates: start: 20120713
  34. FERROUS SULF [Concomitant]
     Active Substance: FERROUS SULFATE
     Dates: start: 20130101
  35. DEXILANT [Suspect]
     Active Substance: DEXLANSOPRAZOLE
     Indication: GASTROOESOPHAGEAL REFLUX DISEASE
     Route: 065
     Dates: start: 20130722, end: 20130822
  36. METOCLOPRAM [Concomitant]
     Active Substance: METOCLOPRAMIDE
     Dates: start: 20100316
  37. TRAVATAN [Concomitant]
     Active Substance: TRAVOPROST
     Dates: start: 20100406
  38. ADVAIR DISKU [Concomitant]
     Dates: start: 20110308
  39. CYCLOBENZAPR [Concomitant]
     Active Substance: CYCLOBENZAPRINE
     Dates: start: 20110405
  40. CETRIZINE [Concomitant]
     Active Substance: CETIRIZINE HYDROCHLORIDE
     Dates: start: 20120713
  41. ZANTAC [Concomitant]
     Active Substance: RANITIDINE HYDROCHLORIDE
  42. PRILOSEC OTC [Suspect]
     Active Substance: OMEPRAZOLE MAGNESIUM
     Route: 048
  43. LIPITOR [Concomitant]
     Active Substance: ATORVASTATIN CALCIUM
     Dates: start: 20100412
  44. ZOLPIDEM [Concomitant]
     Active Substance: ZOLPIDEM TARTRATE
     Dates: start: 20150506
  45. PEPCID AC [Concomitant]
     Active Substance: FAMOTIDINE
  46. PHENINDIONE [Concomitant]
     Active Substance: PHENINDIONE

REACTIONS (3)
  - Renal tubular necrosis [Unknown]
  - End stage renal disease [Unknown]
  - Chronic kidney disease [Unknown]

NARRATIVE: CASE EVENT DATE: 20110311
